FAERS Safety Report 8349702-5 (Version None)
Quarter: 2012Q2

REPORT INFORMATION
  Report Type: 
  Country: None (occurrence: None)
  Receive Date: 20120510
  Receipt Date: 20120507
  Transmission Date: 20120825
  Serious: Yes (Other)
  Sender: FDA-Public Use
  Company Number: PHHY2012DE039333

PATIENT

DRUGS (1)
  1. RASILEZ [Suspect]
     Dosage: 300 MG

REACTIONS (1)
  - HYPOKALAEMIA [None]
